FAERS Safety Report 21810567 (Version 2)
Quarter: 2023Q1

REPORT INFORMATION
  Report Type: Report from Study
  Country: US (occurrence: US)
  Receive Date: 20230103
  Receipt Date: 20230109
  Transmission Date: 20230417
  Serious: Yes (Death, Hospitalization, Other)
  Sender: FDA-Public Use
  Company Number: US-MYLANLABS-2022M1148938

PATIENT
  Age: 38 Year
  Sex: Male
  Weight: 81 kg

DRUGS (7)
  1. CYSTEAMINE [Suspect]
     Active Substance: CYSTEAMINE
     Indication: Cystinosis
     Dosage: 2 GTT DROPS, QID
     Route: 047
     Dates: start: 20220726, end: 20220815
  2. CYSTEAMINE [Suspect]
     Active Substance: CYSTEAMINE
     Dosage: 2 GTT DROPS, QID
     Route: 047
     Dates: start: 20220816
  3. LANTUS [Concomitant]
     Active Substance: INSULIN GLARGINE
     Dosage: UNK
     Route: 065
  4. NOVOLOG [Concomitant]
     Active Substance: INSULIN ASPART
     Dosage: UNK
     Route: 065
  5. MIDODRINE [Concomitant]
     Active Substance: MIDODRINE
     Dosage: UNK
     Route: 065
  6. PROCYSBI [Concomitant]
     Active Substance: CYSTEAMINE BITARTRATE
     Dosage: UNK
     Route: 065
  7. RENVELA [Concomitant]
     Active Substance: SEVELAMER CARBONATE
     Dosage: UNK
     Route: 065

REACTIONS (5)
  - Death [Fatal]
  - Cardiac failure [Not Recovered/Not Resolved]
  - Condition aggravated [Not Recovered/Not Resolved]
  - Clostridium difficile infection [Unknown]
  - Pneumonia [Unknown]

NARRATIVE: CASE EVENT DATE: 20221128
